FAERS Safety Report 20379243 (Version 1)
Quarter: 2022Q1

REPORT INFORMATION
  Report Type: Spontaneous
  Country: US (occurrence: None)
  Receive Date: 20220126
  Receipt Date: 20220126
  Transmission Date: 20220423
  Serious: Yes (Death)
  Sender: FDA-Public Use
  Company Number: None

PATIENT
  Age: 68 Year
  Sex: Female
  Weight: 57.6 kg

DRUGS (1)
  1. REMDESIVIR [Suspect]
     Active Substance: REMDESIVIR
     Indication: COVID-19
     Dates: start: 20211214, end: 20211222

REACTIONS (7)
  - Hypotension [None]
  - Pallor [None]
  - Hyperhidrosis [None]
  - Unresponsive to stimuli [None]
  - Hepatic failure [None]
  - Renal failure [None]
  - Death [None]

NARRATIVE: CASE EVENT DATE: 20220107
